FAERS Safety Report 7207926-4 (Version None)
Quarter: 2011Q1

REPORT INFORMATION
  Report Type: 
  Country: None (occurrence: None)
  Receive Date: 20110104
  Receipt Date: 20101217
  Transmission Date: 20110831
  Serious: Yes (Hospitalization, Other)
  Sender: FDA-Public Use
  Company Number: US-ELI_LILLY_AND_COMPANY-US201012003050

PATIENT
  Age: 76 Year
  Sex: Female

DRUGS (2)
  1. GEMZAR [Suspect]
     Indication: GALLBLADDER CANCER
     Dates: start: 20100701
  2. GEMZAR [Suspect]
     Dosage: 700 MG, OTHER
     Route: 065
     Dates: start: 20101202

REACTIONS (8)
  - CHILLS [None]
  - MALAISE [None]
  - LIVER DISORDER [None]
  - PYREXIA [None]
  - SEPSIS [None]
  - LYMPHADENECTOMY [None]
  - PAIN [None]
  - HEPATECTOMY [None]
